FAERS Safety Report 4477699-7 (Version None)
Quarter: 2004Q4

REPORT INFORMATION
  Report Type: 
  Country: None (occurrence: None)
  Receive Date: 20041014
  Receipt Date: 20041012
  Transmission Date: 20050328
  Serious: Yes (Disabling)
  Sender: FDA-Public Use
  Company Number: S04-GER-01524-01

PATIENT
  Age: 62 Year

DRUGS (2)
  1. CIPRALEX (ESCITALOPRAM) [Suspect]
     Indication: ANXIETY
     Dosage: 10 MG QD PO
     Route: 048
     Dates: start: 20040213, end: 20040302
  2. CIPRALEX (ESCITALOPRAM) [Suspect]
     Indication: DEPRESSION
     Dosage: 10 MG QD PO
     Route: 048
     Dates: start: 20040213, end: 20040302

REACTIONS (5)
  - BREAST TENDERNESS [None]
  - MUSCLE SPASMS [None]
  - NAUSEA [None]
  - TINNITUS [None]
  - TREMOR [None]
